FAERS Safety Report 21419387 (Version 1)
Quarter: 2022Q4

REPORT INFORMATION
  Report Type: Spontaneous
  Country: US (occurrence: US)
  Receive Date: 20221006
  Receipt Date: 20221006
  Transmission Date: 20230113
  Serious: Yes (Disabling, Other)
  Sender: FDA-Public Use
  Company Number: US-TEVA-394680USA

PATIENT
  Sex: Female

DRUGS (4)
  1. ALENDRONATE SODIUM [Suspect]
     Active Substance: ALENDRONATE SODIUM
     Indication: Osteoporosis
     Dosage: IN -2010
     Route: 048
  2. ALENDRONATE SODIUM [Suspect]
     Active Substance: ALENDRONATE SODIUM
     Indication: Osteoporosis
     Dosage: IN 2009, 2010.
     Route: 048
  3. ALENDRONATE SODIUM [Suspect]
     Active Substance: ALENDRONATE SODIUM
     Indication: Osteoporosis
     Dosage: IN -2009
     Route: 048
  4. FOSAMAX [Suspect]
     Active Substance: ALENDRONATE SODIUM
     Indication: Osteoporosis
     Route: 048

REACTIONS (4)
  - Femur fracture [Unknown]
  - Bone disorder [Unknown]
  - Stress fracture [Unknown]
  - Low turnover osteopathy [Unknown]
